FAERS Safety Report 16077465 (Version 2)
Quarter: 2019Q2

REPORT INFORMATION
  Report Type: Spontaneous
  Country: IL (occurrence: IL)
  Receive Date: 20190315
  Receipt Date: 20190603
  Transmission Date: 20190711
  Serious: Yes (Hospitalization)
  Sender: FDA-Public Use
  Company Number: IL-CELGENEUS-ISR-20190303151

PATIENT
  Age: 66 Year
  Sex: Male
  Weight: 82.5 kg

DRUGS (15)
  1. TEVAPIRIN [Concomitant]
     Indication: HYPERTENSION
     Dosage: 100 MILLIGRAM
     Route: 048
     Dates: start: 2009
  2. CALCICHEW D3 [Concomitant]
     Active Substance: CALCIUM\CHOLECALCIFEROL
     Indication: PLASMA CELL MYELOMA
     Dosage: 500 MILLIGRAM
     Route: 048
     Dates: start: 2009
  3. CALCILESS [Concomitant]
     Indication: PERIPHERAL SENSORY NEUROPATHY
     Route: 048
     Dates: start: 20180611
  4. REVLIMID [Suspect]
     Active Substance: LENALIDOMIDE
     Indication: PLASMA CELL MYELOMA
     Route: 048
     Dates: start: 20150127, end: 20190131
  5. GLUCOMIN [Concomitant]
     Active Substance: METFORMIN HYDROCHLORIDE
     Indication: DIABETES MELLITUS
     Dosage: 1700 MILLIGRAM
     Route: 048
     Dates: start: 2009
  6. SODIUM CHLORIDE. [Concomitant]
     Active Substance: SODIUM CHLORIDE
     Indication: RESPIRATORY SYNCYTIAL VIRUS INFECTION
     Dosage: 9 MILLILITER
     Route: 055
     Dates: start: 20190107
  7. VASODIP COMBO [Concomitant]
     Indication: HYPERTENSION
     Dosage: 10 MILLIGRAM
     Route: 048
     Dates: start: 2009
  8. SIMVAXON [Concomitant]
     Indication: HYPERTENSION
     Dosage: 20 MILLIGRAM
     Route: 048
     Dates: start: 2009
  9. BONDORMIN [Concomitant]
     Active Substance: BROTIZOLAM
     Indication: COLITIS
     Route: 048
     Dates: start: 20180902
  10. TAMIFLU [Concomitant]
     Active Substance: OSELTAMIVIR PHOSPHATE
     Indication: RESPIRATORY SYNCYTIAL VIRUS INFECTION
     Dosage: 150 MILLIGRAM
     Route: 048
     Dates: start: 20190109
  11. VITACAL+D [Concomitant]
     Indication: PLASMA CELL MYELOMA
     Dosage: 600 MILLIGRAM
     Route: 048
     Dates: start: 2009
  12. AREDIA [Concomitant]
     Active Substance: PAMIDRONATE DISODIUM
     Indication: METASTASES TO BONE
     Route: 041
     Dates: start: 20150211
  13. DEXAMETHASONE ORAL [Suspect]
     Active Substance: DEXAMETHASONE
     Indication: PLASMA CELL MYELOMA
     Route: 048
     Dates: start: 20150127, end: 20190131
  14. IPRATROPIUM [Concomitant]
     Active Substance: IPRATROPIUM
     Indication: RESPIRATORY SYNCYTIAL VIRUS INFECTION
     Route: 055
     Dates: start: 20190107
  15. MEGANOX [Concomitant]
     Active Substance: LAMOTRIGINE
     Indication: RESPIRATORY SYNCYTIAL VIRUS INFECTION
     Dosage: 1560 MILLIGRAM
     Route: 048
     Dates: start: 20190107

REACTIONS (1)
  - Gastric ulcer [Not Recovered/Not Resolved]

NARRATIVE: CASE EVENT DATE: 20190228
